FAERS Safety Report 8760914 (Version 1)
Quarter: 2012Q4

REPORT INFORMATION
  Report Type: 
  Country: US (occurrence: US)
  Receive Date: 20120830
  Receipt Date: 20120830
  Transmission Date: 20130627
  Serious: Yes (Other)
  Sender: FDA-Public Use
  Company Number: US-JNJFOC-20120812394

PATIENT
  Age: 3 Month
  Weight: 4.1 kg

DRUGS (2)
  1. DURAGESIC [Suspect]
     Indication: DRUG WITHDRAWAL SYNDROME
     Route: 062
  2. FENTANYL CITRATE [Suspect]
     Indication: PRODUCT USED FOR UNKNOWN INDICATION
     Dosage: 9.9 hours and overlap time was 7.2 hours
     Route: 042

REACTIONS (4)
  - Withdrawal syndrome [Unknown]
  - Drug administered to patient of inappropriate age [Unknown]
  - Off label use [Unknown]
  - Wrong technique in drug usage process [Unknown]
